FAERS Safety Report 9926145 (Version 1)
Quarter: 2014Q1

REPORT INFORMATION
  Report Type: Spontaneous
  Country: CA (occurrence: CA)
  Receive Date: 20140226
  Receipt Date: 20140226
  Transmission Date: 20141002
  Serious: Yes (Other)
  Sender: FDA-Public Use
  Company Number: CA-PFIZER INC-2014046073

PATIENT
  Age: 79 Year
  Sex: Male

DRUGS (1)
  1. BENEFIX [Suspect]
     Indication: FACTOR IX DEFICIENCY
     Dosage: 5000 IU, UNK
     Route: 042
     Dates: start: 20130814

REACTIONS (1)
  - Metastases to central nervous system [Not Recovered/Not Resolved]
